FAERS Safety Report 7959418-2 (Version None)
Quarter: 2011Q4

REPORT INFORMATION
  Report Type: 
  Country: None (occurrence: None)
  Receive Date: 20111206
  Receipt Date: 20111121
  Transmission Date: 20120403
  Serious: No
  Sender: FDA-Public Use
  Company Number: US-ENDO PHARMACEUTICALS INC.-PROP20110203

PATIENT
  Sex: Female

DRUGS (1)
  1. PROPOXYPHENE NAPSYLATE W/ ACETAMINOPHEN [Suspect]
     Indication: PAIN
     Dosage: UNK
     Route: 048
     Dates: start: 20060101, end: 20080101

REACTIONS (3)
  - DEATH [None]
  - CARDIAC FAILURE [None]
  - ATRIAL FIBRILLATION [None]
